FAERS Safety Report 12180478 (Version 1)
Quarter: 2016Q1

REPORT INFORMATION
  Report Type: Spontaneous
  Country: US (occurrence: None)
  Receive Date: 20160314
  Receipt Date: 20160314
  Transmission Date: 20160526
  Serious: Yes (Hospitalization)
  Sender: FDA-Public Use
  Company Number: None

PATIENT
  Age: 7 Year
  Sex: Male

DRUGS (1)
  1. MIRALAX [Suspect]
     Active Substance: POLYETHYLENE GLYCOL 3350
     Indication: CONSTIPATION
     Dosage: 1 CAPFUL TWICE DAILY TAKEN BY MOUTH
     Route: 048

REACTIONS (4)
  - Abdominal distension [None]
  - Pain [None]
  - Vomiting [None]
  - Gastrointestinal motility disorder [None]

NARRATIVE: CASE EVENT DATE: 20061229
